FAERS Safety Report 13238368 (Version 1)
Quarter: 2017Q1

REPORT INFORMATION
  Report Type: Spontaneous
  Country: US (occurrence: US)
  Receive Date: 20170215
  Receipt Date: 20170215
  Transmission Date: 20170428
  Serious: Yes (Hospitalization)
  Sender: FDA-Public Use
  Company Number: None

PATIENT
  Age: 7 Month
  Sex: Female

DRUGS (1)
  1. ORAJEL INSTANT RELIEF FOR TEETHING PAIN [Suspect]
     Active Substance: BENZOCAINE
     Indication: TEETHING
     Route: 061
     Dates: start: 20160401, end: 20160501

REACTIONS (4)
  - Skin discolouration [None]
  - Product quality issue [None]
  - Cyanosis [None]
  - Eye movement disorder [None]

NARRATIVE: CASE EVENT DATE: 20160501
